FAERS Safety Report 8095420-0 (Version None)
Quarter: 2012Q1

REPORT INFORMATION
  Report Type: 
  Country: None (occurrence: None)
  Receive Date: 20120126
  Receipt Date: 20120116
  Transmission Date: 20120608
  Serious: Yes (Life-Threatening, Other)
  Sender: FDA-Public Use
  Company Number: 2012P1002803

PATIENT
  Age: 53 Year
  Sex: Female

DRUGS (4)
  1. LOPERAMIDE HCL [Concomitant]
  2. CLOZAPINE [Suspect]
     Indication: BIPOLAR DISORDER
     Dosage: 525 MG;QD
     Dates: start: 19960101
  3. LITHIUM CARBONATE [Suspect]
     Indication: BIPOLAR DISORDER
     Dosage: 600 MG;QD
     Dates: start: 19960101
  4. POLYETHYLENE GLYCOL [Concomitant]

REACTIONS (22)
  - DIZZINESS [None]
  - BRADYPHRENIA [None]
  - ATRIOVENTRICULAR BLOCK COMPLETE [None]
  - ORTHOSTATIC HYPOTENSION [None]
  - CENTRAL VENOUS PRESSURE INCREASED [None]
  - OEDEMA PERIPHERAL [None]
  - MOTOR DYSFUNCTION [None]
  - MULTIPLE SCLEROSIS RELAPSE [None]
  - MYOCARDIAL ISCHAEMIA [None]
  - METABOLIC DISORDER [None]
  - BIPOLAR DISORDER [None]
  - PALPITATIONS [None]
  - FALL [None]
  - HYPOAESTHESIA [None]
  - DISEASE RECURRENCE [None]
  - ADAMS-STOKES SYNDROME [None]
  - HEART VALVE INCOMPETENCE [None]
  - HYPOTHYROIDISM [None]
  - ATRIOVENTRICULAR DISSOCIATION [None]
  - BLOOD PRESSURE SYSTOLIC INCREASED [None]
  - HEART RATE DECREASED [None]
  - EXTENSOR PLANTAR RESPONSE [None]
